FAERS Safety Report 16581898 (Version 1)
Quarter: 2019Q3

REPORT INFORMATION
  Report Type: Spontaneous
  Country: ES (occurrence: ES)
  Receive Date: 20190716
  Receipt Date: 20190716
  Transmission Date: 20191004
  Serious: Yes (Other)
  Sender: FDA-Public Use
  Company Number: ES-B.I. PHARMACEUTICALS,INC./RIDGEFIELD-2019-12-002226

PATIENT
  Age: 73 Year
  Sex: Female

DRUGS (1)
  1. MIRAPEXIN [Suspect]
     Active Substance: PRAMIPEXOLE
     Indication: RESTLESS LEGS SYNDROME
     Dosage: COMPRIMIDOS DE LIBERACION PROLONGADA, 30 COMPRIMIDOS
     Route: 048
     Dates: start: 20190101

REACTIONS (1)
  - Thrombocytopenia [Not Recovered/Not Resolved]

NARRATIVE: CASE EVENT DATE: 201901
